FAERS Safety Report 16956229 (Version 1)
Quarter: 2019Q4

REPORT INFORMATION
  Report Type: Spontaneous
  Country: ES (occurrence: ES)
  Receive Date: 20191024
  Receipt Date: 20191024
  Transmission Date: 20200122
  Serious: Yes (Other)
  Sender: FDA-Public Use
  Company Number: ES-PFIZER INC-2019453440

PATIENT
  Sex: Female

DRUGS (3)
  1. PALBOCICLIB [Suspect]
     Active Substance: PALBOCICLIB
     Dosage: 125 MG, 1X/DAY
  2. ZOLEDRONIC ACID [Suspect]
     Active Substance: ZOLEDRONIC ACID
     Dosage: UNK
  3. LETROZOL [Suspect]
     Active Substance: LETROZOLE
     Dosage: UNK

REACTIONS (3)
  - Mucosal inflammation [Unknown]
  - Neutrophil count decreased [Unknown]
  - Rash [Unknown]
